APPROVED DRUG PRODUCT: METFORMIN HYDROCHLORIDE
Active Ingredient: METFORMIN HYDROCHLORIDE
Strength: 750MG
Dosage Form/Route: TABLET, EXTENDED RELEASE;ORAL
Application: A076863 | Product #001
Applicant: BARR LABORATORIES INC
Approved: Oct 14, 2004 | RLD: No | RS: No | Type: DISCN